FAERS Safety Report 6456251-8 (Version None)
Quarter: 2009Q4

REPORT INFORMATION
  Report Type: 
  Country: None (occurrence: None)
  Receive Date: 20091124
  Receipt Date: 20091124
  Transmission Date: 20100525
  Serious: Yes (Other)
  Sender: FDA-Public Use
  Company Number: None

PATIENT
  Age: 48 Year
  Sex: Male
  Weight: 79.0166 kg

DRUGS (9)
  1. MYCOPHENOLATE MOFETIL [Suspect]
     Indication: IMMUNOSUPPRESSION
     Dosage: 1000 MG BID ORAL 500 MG BID ORAL
     Route: 048
     Dates: start: 20090515, end: 20090901
  2. MYCOPHENOLATE MOFETIL [Suspect]
     Indication: PANCREAS TRANSPLANT
     Dosage: 1000 MG BID ORAL 500 MG BID ORAL
     Route: 048
     Dates: start: 20090515, end: 20090901
  3. MYCOPHENOLATE MOFETIL [Suspect]
     Indication: RENAL TRANSPLANT
     Dosage: 1000 MG BID ORAL 500 MG BID ORAL
     Route: 048
     Dates: start: 20090515, end: 20090901
  4. MYCOPHENOLATE MOFETIL [Suspect]
     Indication: IMMUNOSUPPRESSION
     Dosage: 1000 MG BID ORAL 500 MG BID ORAL
     Route: 048
     Dates: start: 20090515, end: 20091030
  5. MYCOPHENOLATE MOFETIL [Suspect]
     Indication: PANCREAS TRANSPLANT
     Dosage: 1000 MG BID ORAL 500 MG BID ORAL
     Route: 048
     Dates: start: 20090515, end: 20091030
  6. MYCOPHENOLATE MOFETIL [Suspect]
     Indication: RENAL TRANSPLANT
     Dosage: 1000 MG BID ORAL 500 MG BID ORAL
     Route: 048
     Dates: start: 20090515, end: 20091030
  7. MYCOPHENOLATE MOFETIL [Suspect]
     Indication: IMMUNOSUPPRESSION
     Dosage: 1000 MG BID ORAL 500 MG BID ORAL
     Route: 048
     Dates: start: 20090901
  8. MYCOPHENOLATE MOFETIL [Suspect]
     Indication: PANCREAS TRANSPLANT
     Dosage: 1000 MG BID ORAL 500 MG BID ORAL
     Route: 048
     Dates: start: 20090901
  9. MYCOPHENOLATE MOFETIL [Suspect]
     Indication: RENAL TRANSPLANT
     Dosage: 1000 MG BID ORAL 500 MG BID ORAL
     Route: 048
     Dates: start: 20090901

REACTIONS (6)
  - ABDOMINAL PAIN [None]
  - CREATININE RENAL CLEARANCE DECREASED [None]
  - DIARRHOEA [None]
  - GASTROINTESTINAL SOUNDS ABNORMAL [None]
  - PRODUCT SUBSTITUTION ISSUE [None]
  - WEIGHT DECREASED [None]
